FAERS Safety Report 7006438-0 (Version None)
Quarter: 2010Q3

REPORT INFORMATION
  Report Type: 
  Country: None (occurrence: None)
  Receive Date: 20100910
  Receipt Date: 20100903
  Transmission Date: 20110219
  Serious: Yes (Hospitalization)
  Sender: FDA-Public Use
  Company Number: WAES 1008USA01939

PATIENT
  Age: 53 Year
  Sex: Female

DRUGS (31)
  1. CAP VORINOSTAT [Suspect]
     Indication: NODAL MARGINAL ZONE B-CELL LYMPHOMA
     Dosage: 200 MG/BID, MG/DAILY
     Route: 048
     Dates: start: 20090528, end: 20090610
  2. CAP VORINOSTAT [Suspect]
     Indication: NODAL MARGINAL ZONE B-CELL LYMPHOMA
     Dosage: 200 MG/BID, MG/DAILY
     Route: 048
     Dates: start: 20090618, end: 20090701
  3. CAP VORINOSTAT [Suspect]
     Indication: NODAL MARGINAL ZONE B-CELL LYMPHOMA
     Dosage: 200 MG/BID, MG/DAILY
     Route: 048
     Dates: start: 20090709, end: 20090722
  4. CAP VORINOSTAT [Suspect]
     Indication: NODAL MARGINAL ZONE B-CELL LYMPHOMA
     Dosage: 200 MG/BID, MG/DAILY
     Route: 048
     Dates: start: 20090731, end: 20090813
  5. CAP VORINOSTAT [Suspect]
     Indication: NODAL MARGINAL ZONE B-CELL LYMPHOMA
     Dosage: 200 MG/BID, MG/DAILY
     Route: 048
     Dates: start: 20090821, end: 20090903
  6. CAP VORINOSTAT [Suspect]
     Indication: NODAL MARGINAL ZONE B-CELL LYMPHOMA
     Dosage: 200 MG/BID, MG/DAILY
     Route: 048
     Dates: start: 20090911, end: 20090921
  7. CAP VORINOSTAT [Suspect]
     Indication: NODAL MARGINAL ZONE B-CELL LYMPHOMA
     Dosage: 200 MG/BID, MG/DAILY
     Route: 048
     Dates: start: 20090922, end: 20090922
  8. CAP VORINOSTAT [Suspect]
     Indication: NODAL MARGINAL ZONE B-CELL LYMPHOMA
     Dosage: 200 MG/BID, MG/DAILY
     Route: 048
     Dates: start: 20090923, end: 20090924
  9. CAP VORINOSTAT [Suspect]
     Indication: NODAL MARGINAL ZONE B-CELL LYMPHOMA
     Dosage: 200 MG/BID, MG/DAILY
     Route: 048
     Dates: start: 20091002, end: 20091013
  10. CAP VORINOSTAT [Suspect]
     Indication: NODAL MARGINAL ZONE B-CELL LYMPHOMA
     Dosage: 200 MG/BID, MG/DAILY
     Route: 048
     Dates: start: 20091014, end: 20091014
  11. CAP VORINOSTAT [Suspect]
     Indication: NODAL MARGINAL ZONE B-CELL LYMPHOMA
     Dosage: 200 MG/BID, MG/DAILY
     Route: 048
     Dates: start: 20091015, end: 20091015
  12. CAP VORINOSTAT [Suspect]
     Indication: NODAL MARGINAL ZONE B-CELL LYMPHOMA
     Dosage: 200 MG/BID, MG/DAILY
     Route: 048
     Dates: start: 20091023, end: 20091023
  13. CAP VORINOSTAT [Suspect]
     Indication: NODAL MARGINAL ZONE B-CELL LYMPHOMA
     Dosage: 200 MG/BID, MG/DAILY
     Route: 048
     Dates: start: 20091025, end: 20091105
  14. CAP VORINOSTAT [Suspect]
     Indication: NODAL MARGINAL ZONE B-CELL LYMPHOMA
     Dosage: 200 MG/BID, MG/DAILY
     Route: 048
     Dates: start: 20091113, end: 20091125
  15. CAP VORINOSTAT [Suspect]
     Indication: NODAL MARGINAL ZONE B-CELL LYMPHOMA
     Dosage: 200 MG/BID, MG/DAILY
     Route: 048
     Dates: start: 20091126, end: 20091126
  16. CAP VORINOSTAT [Suspect]
     Indication: NODAL MARGINAL ZONE B-CELL LYMPHOMA
     Dosage: 200 MG/BID, MG/DAILY
     Route: 048
     Dates: start: 20091204, end: 20091208
  17. CAP VORINOSTAT [Suspect]
     Indication: NODAL MARGINAL ZONE B-CELL LYMPHOMA
     Dosage: 200 MG/BID, MG/DAILY
     Route: 048
     Dates: start: 20091209, end: 20091209
  18. CAP VORINOSTAT [Suspect]
     Indication: NODAL MARGINAL ZONE B-CELL LYMPHOMA
     Dosage: 200 MG/BID, MG/DAILY
     Route: 048
     Dates: start: 20091210, end: 20091217
  19. CAP VORINOSTAT [Suspect]
     Indication: NODAL MARGINAL ZONE B-CELL LYMPHOMA
     Dosage: 200 MG/BID, MG/DAILY
     Route: 048
     Dates: start: 20091225, end: 20091227
  20. CAP VORINOSTAT [Suspect]
     Indication: NODAL MARGINAL ZONE B-CELL LYMPHOMA
     Dosage: 200 MG/BID, MG/DAILY
     Route: 048
     Dates: start: 20091228, end: 20091228
  21. CAP VORINOSTAT [Suspect]
     Indication: NODAL MARGINAL ZONE B-CELL LYMPHOMA
     Dosage: 200 MG/BID, MG/DAILY
     Route: 048
     Dates: start: 20091229, end: 20100101
  22. CAP VORINOSTAT [Suspect]
     Indication: NODAL MARGINAL ZONE B-CELL LYMPHOMA
     Dosage: 200 MG/BID, MG/DAILY
     Route: 048
     Dates: start: 20100102, end: 20100102
  23. CAP VORINOSTAT [Suspect]
     Indication: NODAL MARGINAL ZONE B-CELL LYMPHOMA
     Dosage: 200 MG/BID, MG/DAILY
     Route: 048
     Dates: start: 20100103, end: 20100107
  24. CAP VORINOSTAT [Suspect]
     Indication: NODAL MARGINAL ZONE B-CELL LYMPHOMA
     Dosage: 200 MG/BID, MG/DAILY
     Route: 048
     Dates: start: 20100115, end: 20100115
  25. CAP VORINOSTAT [Suspect]
     Indication: NODAL MARGINAL ZONE B-CELL LYMPHOMA
     Dosage: 200 MG/BID, MG/DAILY
     Route: 048
     Dates: start: 20100116, end: 20100117
  26. CAP VORINOSTAT [Suspect]
     Indication: NODAL MARGINAL ZONE B-CELL LYMPHOMA
     Dosage: 200 MG/BID, MG/DAILY
     Route: 048
     Dates: start: 20100118, end: 20100128
  27. CAP VORINOSTAT [Suspect]
     Indication: NODAL MARGINAL ZONE B-CELL LYMPHOMA
     Dosage: 200 MG/BID, MG/DAILY
     Route: 048
     Dates: start: 20100205, end: 20100214
  28. HYPOCA [Concomitant]
  29. LIPITOR [Concomitant]
  30. MICARDIS [Concomitant]
  31. KETOPROFEN [Concomitant]

REACTIONS (6)
  - DEEP VEIN THROMBOSIS [None]
  - EMBOLISM VENOUS [None]
  - LYMPHADENOPATHY [None]
  - PULMONARY EMBOLISM [None]
  - UPPER RESPIRATORY TRACT INFLAMMATION [None]
  - VENOUS ANEURYSM [None]
